FAERS Safety Report 7104401-2 (Version None)
Quarter: 2010Q4

REPORT INFORMATION
  Report Type: 
  Country: None (occurrence: None)
  Receive Date: 20101115
  Receipt Date: 20101109
  Transmission Date: 20110411
  Serious: Yes (Other)
  Sender: FDA-Public Use
  Company Number: US-GILEAD-2010-0033443

PATIENT
  Sex: Female

DRUGS (16)
  1. LETAIRIS [Suspect]
     Indication: PULMONARY ARTERIAL HYPERTENSION
     Route: 048
     Dates: start: 20091201
  2. REVATIO [Concomitant]
  3. PLAVIX [Concomitant]
  4. AVAPRO [Concomitant]
  5. LOPRESSOR [Concomitant]
  6. AZITHROMYCIN [Concomitant]
  7. LYRICA [Concomitant]
  8. XIFAXAN [Concomitant]
  9. ADVAIR DISKUS 100/50 [Concomitant]
  10. SINGULAIR [Concomitant]
  11. AMARYL [Concomitant]
  12. NEXIUM [Concomitant]
  13. KLOR-CON [Concomitant]
  14. ALLEGRA [Concomitant]
  15. PREDNISONE [Concomitant]
  16. SYNTHROID [Concomitant]

REACTIONS (2)
  - CARDIAC DISORDER [None]
  - HAEMOGLOBIN DECREASED [None]
